FAERS Safety Report 14461498 (Version 8)
Quarter: 2018Q2

REPORT INFORMATION
  Report Type: Other
  Country: GB (occurrence: GB)
  Receive Date: 20180130
  Receipt Date: 20180515
  Transmission Date: 20180711
  Serious: Yes (Hospitalization, Other)
  Sender: FDA-Public Use
  Company Number: GB-RARE DISEASE THERAPEUTICS, INC.-2041090

PATIENT
  Age: 30 Year
  Sex: Male

DRUGS (13)
  1. PURIXAN [Suspect]
     Active Substance: MERCAPTOPURINE
     Indication: ACUTE LYMPHOCYTIC LEUKAEMIA
     Route: 048
     Dates: start: 20170814
  2. RITUXIMAB. [Suspect]
     Active Substance: RITUXIMAB
     Route: 042
     Dates: start: 20170511, end: 20170601
  3. KEPIVANCE [Suspect]
     Active Substance: PALIFERMIN
     Route: 065
  4. METHOTREXATE. [Suspect]
     Active Substance: METHOTREXATE
     Route: 048
     Dates: start: 20170814, end: 20170910
  5. G-SCF [Concomitant]
     Route: 065
  6. DOMPERIDONE [Concomitant]
     Active Substance: DOMPERIDONE
     Route: 065
  7. METHOTREXATE. [Suspect]
     Active Substance: METHOTREXATE
     Route: 037
     Dates: start: 20170822, end: 20170822
  8. ONDANSETRON [Concomitant]
     Active Substance: ONDANSETRON
     Route: 065
     Dates: start: 20170913
  9. CYTARABINE. [Suspect]
     Active Substance: CYTARABINE
     Route: 042
     Dates: start: 20170821, end: 20170825
  10. ONCASPAR [Suspect]
     Active Substance: PEGASPARGASE
     Route: 042
     Dates: start: 20170821, end: 20170825
  11. ATRIANCE [Suspect]
     Active Substance: NELARABINE
     Route: 065
  12. ETOPOSIDE. [Suspect]
     Active Substance: ETOPOSIDE
     Route: 042
     Dates: start: 20170821, end: 20170825
  13. ANTITHROMBIN ALFA [Concomitant]
     Active Substance: ANTITHROMBIN ALFA
     Route: 065

REACTIONS (2)
  - Tachycardia [Unknown]
  - Pulmonary embolism [Recovered/Resolved with Sequelae]

NARRATIVE: CASE EVENT DATE: 20170911
